FAERS Safety Report 7595638-7 (Version None)
Quarter: 2011Q3

REPORT INFORMATION
  Report Type: 
  Country: None (occurrence: None)
  Receive Date: 20110707
  Receipt Date: 20110621
  Transmission Date: 20111222
  Serious: Yes (Hospitalization)
  Sender: FDA-Public Use
  Company Number: PHHY2011US50615

PATIENT
  Sex: Female

DRUGS (9)
  1. UNIDENTIFIED THYROID MEDICATION [Suspect]
     Dosage: UNK
  2. EXFORGE [Suspect]
     Indication: BLOOD PRESSURE
     Dosage: 320 MG VALASARTAN AND 5 AMLODINE
     Route: 048
     Dates: start: 20110610, end: 20110612
  3. AMLODIPINE [Suspect]
  4. METHIMAZOLE [Suspect]
  5. UNIDENTIFIED BLOOD PRESSURE MEDICATION [Suspect]
  6. DIOVAN [Suspect]
     Dosage: 320 MG, UNK
  7. ATENOLOL [Suspect]
  8. ASPIRIN [Suspect]
     Dosage: 10 MG, UNK
  9. CRESTOR [Suspect]
     Dosage: 10 MG, UNK

REACTIONS (4)
  - THYROID DISORDER [None]
  - FEELING ABNORMAL [None]
  - DIZZINESS [None]
  - CHEST DISCOMFORT [None]
